FAERS Safety Report 15439830 (Version 2)
Quarter: 2018Q4

REPORT INFORMATION
  Report Type: Spontaneous
  Country: GB (occurrence: GB)
  Receive Date: 20180928
  Receipt Date: 20181012
  Transmission Date: 20190204
  Serious: Yes (Other)
  Sender: FDA-Public Use
  Company Number: GB-009507513-1809GBR010079

PATIENT
  Sex: Male

DRUGS (2)
  1. ONCOTICE [Suspect]
     Active Substance: BACILLUS CALMETTE-GUERIN SUBSTRAIN TICE LIVE ANTIGEN
     Indication: BLADDER CANCER STAGE III
     Dosage: DOSE 1 VIAL, FREQUENCY REPORTED AS ^HAD 6+1^
     Route: 043
     Dates: start: 201805, end: 201810
  2. FERROUS SULFATE. [Concomitant]
     Active Substance: FERROUS SULFATE
     Dosage: UNK
     Route: 048

REACTIONS (2)
  - Basal cell carcinoma [Unknown]
  - Scar pain [Unknown]
